FAERS Safety Report 9071657 (Version 1)
Quarter: 2013Q1

REPORT INFORMATION
  Report Type: Spontaneous
  Country: US (occurrence: US)
  Receive Date: 20130206
  Receipt Date: 20130206
  Transmission Date: 20140127
  Serious: No
  Sender: FDA-Public Use
  Company Number: US-ALLERGAN-1213239US

PATIENT
  Sex: Female

DRUGS (2)
  1. RESTASIS? [Suspect]
     Indication: DRY EYE
     Dosage: UNK, SINGLE
     Route: 047
     Dates: start: 20120712
  2. REFRESH OPTIVE SENSITIVE [Concomitant]
     Indication: DRY EYE
     Dosage: UNK
     Route: 047
     Dates: start: 20120712

REACTIONS (3)
  - Wrong drug administered [Unknown]
  - Eye disorder [Recovered/Resolved]
  - Eye pain [Recovered/Resolved]
